FAERS Safety Report 16713174 (Version 1)
Quarter: 2019Q3

REPORT INFORMATION
  Report Type: Spontaneous
  Country: US (occurrence: US)
  Receive Date: 20190817
  Receipt Date: 20190817
  Transmission Date: 20191004
  Serious: No
  Sender: FDA-Public Use
  Company Number: US-009507513-1908USA006345

PATIENT
  Age: 60 Year
  Sex: Female

DRUGS (1)
  1. JANUVIA [Suspect]
     Active Substance: SITAGLIPTIN PHOSPHATE
     Dosage: 100 MILLIGRAM, QD
     Dates: start: 2018

REACTIONS (4)
  - Product physical issue [Unknown]
  - Product dose omission [Unknown]
  - Product colour issue [Unknown]
  - Product odour abnormal [Unknown]

NARRATIVE: CASE EVENT DATE: 201907
